FAERS Safety Report 15613367 (Version 1)
Quarter: 2018Q4

REPORT INFORMATION
  Report Type: Report from Study
  Country: US (occurrence: US)
  Receive Date: 20181113
  Receipt Date: 20181113
  Transmission Date: 20190205
  Serious: Yes (Death, Hospitalization, Other)
  Sender: FDA-Public Use
  Company Number: US-PFIZER INC-2018454990

PATIENT
  Age: 32 Year
  Sex: Female

DRUGS (2)
  1. IBRANCE [Suspect]
     Active Substance: PALBOCICLIB
     Dosage: 125 MG, CYCLIC (DAILY; 125MG DAILY FOR 21 DAYS OF 28 DAY CYCLE)
     Route: 048
     Dates: start: 20181023, end: 20181025
  2. IBRANCE [Suspect]
     Active Substance: PALBOCICLIB
     Indication: BREAST CANCER FEMALE
     Dosage: 125 MG, CYCLIC (DAILY; 125MG DAILY FOR 21 DAYS OF 28 DAY CYCLE)
     Route: 048
     Dates: start: 20181016, end: 20181026

REACTIONS (9)
  - Anaemia [Unknown]
  - Dyspnoea [Unknown]
  - Disorientation [Unknown]
  - Incontinence [Unknown]
  - Leukopenia [Unknown]
  - Somnolence [Unknown]
  - Thrombocytopenia [Unknown]
  - Mental disorder [Unknown]
  - Death [Fatal]

NARRATIVE: CASE EVENT DATE: 201810
